FAERS Safety Report 7318475-7 (Version None)
Quarter: 2011Q1

REPORT INFORMATION
  Report Type: 
  Country: None (occurrence: None)
  Receive Date: 20110228
  Receipt Date: 20110217
  Transmission Date: 20110831
  Serious: No
  Sender: FDA-Public Use
  Company Number: US-PFIZER INC-2011038440

PATIENT
  Sex: Female

DRUGS (4)
  1. ACETYLSALICYLIC ACID SRT [Suspect]
     Dosage: 500 MG, PER DAY
  2. CELEBREX [Suspect]
     Dosage: UNK
  3. NAPROSYN [Suspect]
     Dosage: UNK
  4. CYMBALTA [Suspect]
     Dosage: UNK

REACTIONS (4)
  - OVERWEIGHT [None]
  - HYPERTENSION [None]
  - EMOTIONAL DISTRESS [None]
  - EPISTAXIS [None]
